FAERS Safety Report 7719321-X (Version None)
Quarter: 2011Q3

REPORT INFORMATION
  Report Type: 
  Country: None (occurrence: None)
  Receive Date: 20110830
  Receipt Date: 20110825
  Transmission Date: 20111222
  Serious: Yes (Hospitalization, Other)
  Sender: FDA-Public Use
  Company Number: ZA-BAYER-2011-061247

PATIENT
  Age: 64 Year
  Sex: Male

DRUGS (1)
  1. MOXIFLOXACIN [Suspect]
     Dosage: 400 MG, QD
     Route: 048

REACTIONS (6)
  - VOMITING [None]
  - BLOOD PRESSURE DECREASED [None]
  - HEART RATE INCREASED [None]
  - COLD SWEAT [None]
  - SILENT MYOCARDIAL INFARCTION [None]
  - LOSS OF CONSCIOUSNESS [None]
